FAERS Safety Report 18397251 (Version 1)
Quarter: 2020Q4

REPORT INFORMATION
  Report Type: Spontaneous
  Country: US (occurrence: US)
  Receive Date: 20201016
  Receipt Date: 20201016
  Transmission Date: 20210114
  Serious: Yes (Other)
  Sender: FDA-Public Use
  Company Number: None

PATIENT
  Age: 44 Year
  Sex: Male
  Weight: 83.7 kg

DRUGS (2)
  1. BUPROPION HYDROCHLORIDE XL [Suspect]
     Active Substance: BUPROPION HYDROCHLORIDE
     Indication: DEPRESSION
     Dosage: ?          QUANTITY:1 TABLET(S);?
     Route: 048
     Dates: start: 20201009, end: 20201016
  2. MELATONIN [Concomitant]
     Active Substance: MELATONIN

REACTIONS (2)
  - Malaise [None]
  - Poor quality sleep [None]

NARRATIVE: CASE EVENT DATE: 20201015
